FAERS Safety Report 7442631-0 (Version None)
Quarter: 2011Q2

REPORT INFORMATION
  Report Type: 
  Country: None (occurrence: None)
  Receive Date: 20110428
  Receipt Date: 20110412
  Transmission Date: 20111010
  Serious: No
  Sender: FDA-Public Use
  Company Number: US-B.I. PHARMACEUTICALS,INC./RIDGEFIELD-2011-BP-10628BP

PATIENT
  Sex: Male

DRUGS (3)
  1. ARTIFICIAL TEARS [Concomitant]
     Indication: VISION BLURRED
     Route: 031
     Dates: start: 20110407
  2. ARTIFICIAL TEARS [Concomitant]
     Indication: EYE PAIN
  3. SPIRIVA [Suspect]
     Indication: CHRONIC OBSTRUCTIVE PULMONARY DISEASE
     Dosage: 18 MCG
     Route: 055
     Dates: start: 20110402

REACTIONS (3)
  - FOREIGN BODY SENSATION IN EYES [None]
  - EYE PAIN [None]
  - VISION BLURRED [None]
